FAERS Safety Report 26172976 (Version 1)
Quarter: 2025Q4

REPORT INFORMATION
  Report Type: Spontaneous
  Country: GB (occurrence: GB)
  Receive Date: 20251218
  Receipt Date: 20251218
  Transmission Date: 20260117
  Serious: Yes (Other)
  Sender: Thea Pharma
  Company Number: GB-THEA-2025001026

PATIENT
  Age: 78 Year
  Sex: Male

DRUGS (8)
  1. HYALURONATE SODIUM\TREHALOSE [Suspect]
     Active Substance: HYALURONATE SODIUM\TREHALOSE
     Indication: Dry eye
     Dosage: NOT REPORTED
     Route: 065
  2. HYALURONATE SODIUM\TREHALOSE [Suspect]
     Active Substance: HYALURONATE SODIUM\TREHALOSE
     Indication: Dry eye
     Dosage: UNK
     Route: 065
     Dates: start: 20250708
  3. HYALURONATE SODIUM\TREHALOSE [Suspect]
     Active Substance: HYALURONATE SODIUM\TREHALOSE
     Indication: Dry eye
     Dosage: UNK
  4. HYALURONATE SODIUM\TREHALOSE [Suspect]
     Active Substance: HYALURONATE SODIUM\TREHALOSE
     Indication: Dry eye
     Dosage: UNK
  5. HYALURONATE SODIUM\TREHALOSE [Suspect]
     Active Substance: HYALURONATE SODIUM\TREHALOSE
     Indication: Dry eye
     Dates: start: 2025
  6. HYALURONATE SODIUM\TREHALOSE [Suspect]
     Active Substance: HYALURONATE SODIUM\TREHALOSE
     Indication: Dry eye
     Dosage: UNK
  7. OTOMIZE [Concomitant]
     Indication: Ear infection
     Dosage: NOT REPORTED
  8. LATANOPROST [Suspect]
     Active Substance: LATANOPROST
     Indication: Product used for unknown indication
     Dosage: UNKNOWN.

REACTIONS (10)
  - Abdominal distension [Recovering/Resolving]
  - Chest discomfort [Unknown]
  - Total lung capacity abnormal [Not Recovered/Not Resolved]
  - Hypersensitivity [Not Recovered/Not Resolved]
  - Product availability issue [Unknown]
  - Extra dose administered [Unknown]
  - Nausea [Recovering/Resolving]
  - Productive cough [Recovering/Resolving]
  - Device effect decreased [Unknown]
  - Wrong technique in product usage process [Unknown]

NARRATIVE: CASE EVENT DATE: 20250701
